FAERS Safety Report 23379085 (Version 15)
Quarter: 2025Q2

REPORT INFORMATION
  Report Type: Spontaneous
  Country: US (occurrence: US)
  Receive Date: 20240108
  Receipt Date: 20250516
  Transmission Date: 20250717
  Serious: Yes (Hospitalization, Other)
  Sender: PFIZER
  Company Number: US-PFIZER INC-PV202300204587

PATIENT
  Age: 66 Year
  Sex: Female

DRUGS (10)
  1. XELJANZ [Suspect]
     Active Substance: TOFACITINIB CITRATE
     Dosage: 5 MG, 2X/DAY
  2. XELJANZ [Suspect]
     Active Substance: TOFACITINIB CITRATE
  3. CLARITIN [Concomitant]
     Active Substance: LORATADINE
  4. TYLENOL [Concomitant]
     Active Substance: ACETAMINOPHEN
  5. PANTOPRAZOLE [Concomitant]
     Active Substance: PANTOPRAZOLE
  6. LORATADINE [Concomitant]
     Active Substance: LORATADINE
  7. TRULICITY [Concomitant]
     Active Substance: DULAGLUTIDE
  8. FLOVENT [Concomitant]
     Active Substance: FLUTICASONE PROPIONATE
  9. GABAPENTIN [Concomitant]
     Active Substance: GABAPENTIN
  10. ZYRTEC [Concomitant]
     Active Substance: CETIRIZINE HYDROCHLORIDE

REACTIONS (21)
  - Fall [Unknown]
  - Lumbar vertebral fracture [Unknown]
  - Rheumatoid arthritis [Not Recovered/Not Resolved]
  - Arthralgia [Not Recovered/Not Resolved]
  - Pain [Not Recovered/Not Resolved]
  - Neck pain [Unknown]
  - Back pain [Not Recovered/Not Resolved]
  - Headache [Not Recovered/Not Resolved]
  - Cataract [Unknown]
  - Blindness [Unknown]
  - Aortic occlusion [Unknown]
  - Intentional product misuse [Unknown]
  - Influenza [Unknown]
  - Peripheral swelling [Not Recovered/Not Resolved]
  - Pain in extremity [Not Recovered/Not Resolved]
  - Crying [Not Recovered/Not Resolved]
  - Mobility decreased [Not Recovered/Not Resolved]
  - Quality of life decreased [Not Recovered/Not Resolved]
  - Somnolence [Unknown]
  - Gait disturbance [Unknown]
  - Illness [Unknown]

NARRATIVE: CASE EVENT DATE: 20240101
